FAERS Safety Report 9617289 (Version 1)
Quarter: 2013Q4

REPORT INFORMATION
  Report Type: Spontaneous
  Country: US (occurrence: US)
  Receive Date: 20131011
  Receipt Date: 20131011
  Transmission Date: 20140711
  Serious: Yes (Hospitalization)
  Sender: FDA-Public Use
  Company Number: US-FRI-1000040244

PATIENT
  Sex: Male

DRUGS (1)
  1. TEFLARO [Suspect]
     Indication: POST PROCEDURAL INFECTION
     Dosage: 1200 MG
     Route: 042
     Dates: start: 20120928, end: 20121024

REACTIONS (2)
  - Postoperative wound complication [Unknown]
  - Wound infection bacterial [Unknown]
